FAERS Safety Report 7357092-X (Version None)
Quarter: 2011Q1

REPORT INFORMATION
  Report Type: 
  Country: None (occurrence: None)
  Receive Date: 20110308
  Receipt Date: 20110222
  Transmission Date: 20110831
  Serious: Yes (Death)
  Sender: FDA-Public Use
  Company Number: 2011000950

PATIENT
  Age: 63 Year
  Sex: Male

DRUGS (10)
  1. OLANZAPINE [Concomitant]
  2. GLIMEPIRIDE [Concomitant]
  3. QUETIAPINE FUMARATE [Concomitant]
  4. OXYCODONE (OXYCODONE) [Concomitant]
  5. TAZOPERAN [Concomitant]
  6. CODEINE PHOSPHATE (CODEINE PHOSPHATE) [Concomitant]
  7. ERLOTINIB (ERLOTINIB) (TABLET) (ERLOTINIB) [Suspect]
     Indication: NON-SMALL CELL LUNG CANCER
     Dosage: 150 MG, QD, ORAL
     Route: 048
     Dates: start: 20100906, end: 20100914
  8. IVY-DRY [Concomitant]
  9. INSULIN HUMAN (INSULIN HUMAN) [Concomitant]
  10. TAMSULOSIN HCL [Concomitant]

REACTIONS (1)
  - PNEUMONIA [None]
